FAERS Safety Report 5515509-7 (Version None)
Quarter: 2007Q4

REPORT INFORMATION
  Report Type: 
  Country: None (occurrence: None)
  Receive Date: 20071113
  Receipt Date: 20070312
  Transmission Date: 20080405
  Serious: No
  Sender: FDA-Public Use
  Company Number: A0642833A

PATIENT
  Age: 59 Year
  Sex: Male

DRUGS (7)
  1. COREG [Suspect]
     Indication: HYPERTENSION
     Dosage: 12.5MG TWICE PER DAY
     Route: 048
  2. STOOL SOFTENER [Concomitant]
  3. COUMADIN [Concomitant]
  4. LIBRAX [Concomitant]
  5. LORAZEPAM [Concomitant]
  6. MAALOX [Concomitant]
  7. PRILOSEC [Concomitant]

REACTIONS (4)
  - CONSTIPATION [None]
  - DRUG INEFFECTIVE [None]
  - FATIGUE [None]
  - MYALGIA [None]
